FAERS Safety Report 10263034 (Version 7)
Quarter: 2015Q2

REPORT INFORMATION
  Report Type: Spontaneous
  Country: US (occurrence: US)
  Receive Date: 20140626
  Receipt Date: 20150622
  Transmission Date: 20150821
  Serious: Yes (Hospitalization, Congenital Anomaly, Other)
  Sender: FDA-Public Use
  Company Number: US-ELI_LILLY_AND_COMPANY-US201406008287

PATIENT
  Age: 1 Year
  Sex: Female

DRUGS (17)
  1. INSULIN H R [Concomitant]
     Route: 064
  2. DARVOCET-N 100 [Concomitant]
     Active Substance: ACETAMINOPHEN\PROPOXYPHENE NAPSYLATE
     Route: 064
  3. DILAUDID [Concomitant]
     Active Substance: HYDROMORPHONE HYDROCHLORIDE
     Route: 064
  4. GAMMAGLOBULIN [Concomitant]
     Active Substance: HUMAN IMMUNOGLOBULIN G
     Route: 064
  5. BECLOVENT [Concomitant]
     Active Substance: BECLOMETHASONE DIPROPIONATE
     Route: 064
  6. AZMACORT [Concomitant]
     Active Substance: TRIAMCINOLONE ACETONIDE
     Route: 064
  7. PENICILLIN                         /00000901/ [Concomitant]
     Active Substance: PENICILLIN
     Route: 064
  8. ALBUTEROL                          /00139501/ [Concomitant]
     Active Substance: ALBUTEROL
     Route: 064
  9. PITOCIN [Concomitant]
     Active Substance: OXYTOCIN
     Route: 064
  10. PROZAC [Suspect]
     Active Substance: FLUOXETINE HYDROCHLORIDE
     Indication: PRODUCT USED FOR UNKNOWN INDICATION
     Dosage: UNK UNK, UNKNOWN
     Route: 064
  11. PRENATABS RX [Concomitant]
     Active Substance: VITAMINS
     Route: 064
  12. PREDNISONE. [Concomitant]
     Active Substance: PREDNISONE
     Route: 064
  13. VENTOLIN HFA [Concomitant]
     Active Substance: ALBUTEROL SULFATE
     Route: 064
  14. ATROVENT [Concomitant]
     Active Substance: IPRATROPIUM BROMIDE
     Route: 064
  15. AMPICILLIN [Concomitant]
     Active Substance: AMPICILLIN
     Route: 064
  16. HIDROCORTISON [Concomitant]
     Active Substance: HYDROCORTISONE
     Route: 064
  17. NPH INSULIN [Concomitant]
     Active Substance: INSULIN BEEF
     Route: 064

REACTIONS (15)
  - Cardiac murmur [Unknown]
  - Jaundice neonatal [Unknown]
  - Ventricular septal defect [Recovered/Resolved]
  - Chest pain [Unknown]
  - Asthma [Unknown]
  - Idiopathic urticaria [Unknown]
  - Feeding disorder neonatal [Unknown]
  - Chest pain [Unknown]
  - Foetal exposure during pregnancy [Recovered/Resolved]
  - Congenital naevus [Unknown]
  - Asthma [Unknown]
  - Cardiac failure congestive [Unknown]
  - Foetal heart rate decreased [Unknown]
  - Exposure during breast feeding [Recovered/Resolved]
  - Bronchial hyperreactivity [Unknown]

NARRATIVE: CASE EVENT DATE: 199905
